FAERS Safety Report 7025184-0 (Version None)
Quarter: 2010Q3

REPORT INFORMATION
  Report Type: 
  Country: None (occurrence: None)
  Receive Date: 20100916
  Receipt Date: 20100727
  Transmission Date: 20110219
  Serious: Yes (Other)
  Sender: FDA-Public Use
  Company Number: DKLU1063226

PATIENT
  Sex: Male

DRUGS (1)
  1. SABRIL [Suspect]
     Indication: INFANTILE SPASMS
     Dosage: 500 MG MILLIGRAM(S), AM, ORAL; 750 MG MILLIGRAM(S), AT NIGHT, ORAL
     Route: 048
     Dates: start: 20100206, end: 20100625

REACTIONS (1)
  - CONVULSION [None]
